FAERS Safety Report 22382534 (Version 1)
Quarter: 2023Q2

REPORT INFORMATION
  Report Type: Spontaneous
  Country: US (occurrence: None)
  Receive Date: 20230530
  Receipt Date: 20230530
  Transmission Date: 20230722
  Serious: Yes (Hospitalization)
  Sender: FDA-Public Use
  Company Number: US-ROCHE-3343319

PATIENT
  Age: 74 Year
  Sex: Female

DRUGS (1)
  1. ENSPRYNG [Suspect]
     Active Substance: SATRALIZUMAB-MWGE
     Indication: Neuromyelitis optica spectrum disorder
     Route: 058
     Dates: start: 20221114

REACTIONS (4)
  - Malaise [Not Recovered/Not Resolved]
  - Infection [Unknown]
  - Insomnia [Not Recovered/Not Resolved]
  - Asthenia [Recovering/Resolving]
